FAERS Safety Report 5522138-8 (Version None)
Quarter: 2007Q4

REPORT INFORMATION
  Report Type: 
  Country: None (occurrence: None)
  Receive Date: 20071116
  Receipt Date: 20071107
  Transmission Date: 20080405
  Serious: Yes (Hospitalization)
  Sender: FDA-Public Use
  Company Number: 2007SP019540

PATIENT
  Age: 51 Year
  Sex: Male
  Weight: 117 kg

DRUGS (3)
  1. INTRON A [Suspect]
     Indication: METASTATIC MALIGNANT MELANOMA
     Dosage: IV ; I V
     Dates: start: 20070625, end: 20070704
  2. INTRON A [Suspect]
     Indication: METASTATIC MALIGNANT MELANOMA
     Dosage: IV ; I V
     Dates: start: 20071107
  3. METOPROLOL [Concomitant]

REACTIONS (2)
  - BLOOD URIC ACID INCREASED [None]
  - NEPHROLITHIASIS [None]
